FAERS Safety Report 16163138 (Version 1)
Quarter: 2019Q2

REPORT INFORMATION
  Report Type: Spontaneous
  Country: US (occurrence: US)
  Receive Date: 20190404
  Receipt Date: 20190404
  Transmission Date: 20190711
  Serious: Yes (Death)
  Sender: FDA-Public Use
  Company Number: None

PATIENT
  Sex: Male

DRUGS (4)
  1. DICLOFENAC [Concomitant]
     Active Substance: DICLOFENAC
  2. ASPIRIN. [Concomitant]
     Active Substance: ASPIRIN
  3. LUPRON DEPOT [Suspect]
     Active Substance: LEUPROLIDE ACETATE
     Indication: PROSTATE CANCER
     Dosage: 22.5 MG Q 3 MONTHS INTRAMUSCULAR
     Route: 030
     Dates: start: 20170516
  4. OCUVITE [Concomitant]
     Active Substance: VITAMINS

REACTIONS (1)
  - Death [None]
